FAERS Safety Report 4638865-0 (Version None)
Quarter: 2005Q2

REPORT INFORMATION
  Report Type: 
  Country: None (occurrence: None)
  Receive Date: 20050415
  Receipt Date: 20050415
  Transmission Date: 20051028
  Serious: No
  Sender: FDA-Public Use
  Company Number: None

PATIENT
  Sex: Male
  Weight: 92.5338 kg

DRUGS (1)
  1. FENTANYL PATCH 100 MCG/HR MGT MYLAN PHARMA 000378-9124-98 [Suspect]
     Indication: PAIN
     Dosage: AP ONE PATCH TO SKIN Q 3 RD DAY
     Dates: start: 20050404, end: 20050405

REACTIONS (1)
  - DRUG INEFFECTIVE [None]
